FAERS Safety Report 15697970 (Version 1)
Quarter: 2018Q4

REPORT INFORMATION
  Report Type: Spontaneous
  Country: US (occurrence: US)
  Receive Date: 20181207
  Receipt Date: 20181207
  Transmission Date: 20190205
  Serious: No
  Sender: FDA-Public Use
  Company Number: US-PFIZER INC-2018500223

PATIENT
  Age: 46 Year

DRUGS (1)
  1. ARTHROTEC [Suspect]
     Active Substance: DICLOFENAC SODIUM\MISOPROSTOL
     Indication: PAIN
     Dosage: 1 DF, AS NEEDED ((75 MG DICLOFENAC SODIUM +200  MISOPROSTOL)
     Route: 048

REACTIONS (1)
  - Prescribed overdose [Unknown]
